FAERS Safety Report 20845119 (Version 1)
Quarter: 2022Q2

REPORT INFORMATION
  Report Type: Spontaneous
  Country: US (occurrence: US)
  Receive Date: 20220518
  Receipt Date: 20220518
  Transmission Date: 20220721
  Serious: No
  Sender: FDA-Public Use
  Company Number: US-HORIZON THERAPEUTICS-HZN-2021-004202

PATIENT
  Age: 4 Year
  Sex: Male

DRUGS (5)
  1. BUPHENYL [Suspect]
     Active Substance: SODIUM PHENYLBUTYRATE
     Indication: Urea cycle disorder
     Dosage: UNK
     Route: 065
  2. RAVICTI [Suspect]
     Active Substance: GLYCEROL PHENYLBUTYRATE
     Indication: Urea cycle disorder
     Dosage: UNK
     Route: 065
  3. L CITRULLIN [Concomitant]
     Indication: Product used for unknown indication
     Dosage: UNK
     Route: 065
  4. ARGININE [Concomitant]
     Active Substance: ARGININE
     Indication: Product used for unknown indication
     Dosage: UNK
     Route: 065
  5. ESSENTIAL AMINO ACID MIX [Concomitant]
     Indication: Product used for unknown indication
     Dosage: UNK
     Route: 065

REACTIONS (7)
  - Drug intolerance [Unknown]
  - Developmental delay [Unknown]
  - Learning disability [Unknown]
  - Disturbance in attention [Unknown]
  - Emotional disorder [Unknown]
  - Memory impairment [Unknown]
  - Fatigue [Unknown]
